FAERS Safety Report 4661768-2 (Version None)
Quarter: 2005Q2

REPORT INFORMATION
  Report Type: 
  Country: None (occurrence: None)
  Receive Date: 20050513
  Receipt Date: 20050505
  Transmission Date: 20051028
  Serious: Yes (Other)
  Sender: FDA-Public Use
  Company Number: PHEH2005US05195

PATIENT
  Age: 64 Year
  Sex: Female
  Weight: 56 kg

DRUGS (4)
  1. HERCEPTIN [Concomitant]
     Dosage: 109 MG, QW
  2. FASLODEX [Concomitant]
     Dosage: UNK, QW
     Route: 030
     Dates: start: 20030401, end: 20040201
  3. XELODA [Concomitant]
     Dates: start: 20040301, end: 20041101
  4. ZOMETA [Suspect]
     Indication: BREAST CANCER METASTATIC
     Dosage: 4 MG, QMO
     Route: 042
     Dates: start: 20030404, end: 20050127

REACTIONS (4)
  - ASEPTIC NECROSIS BONE [None]
  - BONE DISORDER [None]
  - ERYTHEMA [None]
  - PAIN IN JAW [None]
